FAERS Safety Report 19786460 (Version 4)
Quarter: 2021Q4

REPORT INFORMATION
  Report Type: Report from Study
  Country: BE (occurrence: BE)
  Receive Date: 20210903
  Receipt Date: 20211008
  Transmission Date: 20220303
  Serious: Yes (Hospitalization)
  Sender: FDA-Public Use
  Company Number: BE-GLAXOSMITHKLINE-BE2021GSK186838

PATIENT
  Age: 62 Year
  Sex: Female
  Weight: 61 kg

DRUGS (18)
  1. ATEZOLIZUMAB [Suspect]
     Active Substance: ATEZOLIZUMAB
     Indication: Ovarian epithelial cancer
     Dosage: 1200 MG
     Dates: start: 20210113, end: 20210113
  2. DOXORUBICIN [Suspect]
     Active Substance: DOXORUBICIN
     Indication: Ovarian epithelial cancer
     Dosage: 1200 MG
     Dates: start: 20210113, end: 20210113
  3. NIRAPARIB [Suspect]
     Active Substance: NIRAPARIB
     Indication: Ovarian epithelial cancer
     Dosage: 1200 MG
     Dates: start: 20210113, end: 20210113
  4. PLACEBO [Suspect]
     Active Substance: UNSPECIFIED INGREDIENT
     Indication: Ovarian epithelial cancer
     Dosage: 1200 MG
     Dates: start: 20210113, end: 20210113
  5. ATEZOLIZUMAB [Suspect]
     Active Substance: ATEZOLIZUMAB
     Dosage: 1200 MG
     Dates: start: 20210811, end: 20210811
  6. DOXORUBICIN [Suspect]
     Active Substance: DOXORUBICIN
     Dosage: 1200 MG
     Dates: start: 20210811, end: 20210811
  7. NIRAPARIB [Suspect]
     Active Substance: NIRAPARIB
     Dosage: 1200 MG
     Dates: start: 20210811, end: 20210811
  8. PLACEBO [Suspect]
     Active Substance: UNSPECIFIED INGREDIENT
     Dosage: 1200 MG
     Dates: start: 20210811, end: 20210811
  9. ATEZOLIZUMAB [Suspect]
     Active Substance: ATEZOLIZUMAB
     Indication: Ovarian epithelial cancer
     Dosage: 200 MG
     Route: 048
     Dates: start: 20210602, end: 20210811
  10. DOXORUBICIN [Suspect]
     Active Substance: DOXORUBICIN
     Indication: Ovarian epithelial cancer
     Dosage: 200 MG
     Route: 048
     Dates: start: 20210602, end: 20210811
  11. NIRAPARIB [Suspect]
     Active Substance: NIRAPARIB
     Indication: Ovarian epithelial cancer
     Dosage: 200 MG
     Route: 048
     Dates: start: 20210602, end: 20210811
  12. PLACEBO [Suspect]
     Active Substance: UNSPECIFIED INGREDIENT
     Indication: Ovarian epithelial cancer
     Dosage: 200 MG
     Route: 048
     Dates: start: 20210602, end: 20210811
  13. IBUPROFEN [Concomitant]
     Active Substance: IBUPROFEN
     Indication: Tendonitis
     Dosage: 300 MG, QD
     Route: 048
     Dates: start: 20210811
  14. FOLIC ACID [Concomitant]
     Active Substance: FOLIC ACID
     Indication: Anaemia
     Dosage: 4 MG, QD
     Route: 048
     Dates: start: 20210811
  15. VITAMIN B12 [Concomitant]
     Active Substance: CYANOCOBALAMIN
     Indication: Anaemia
     Dosage: 1 DF, QD
     Route: 048
     Dates: start: 20210811
  16. VITAMIN B12 [Concomitant]
     Active Substance: CYANOCOBALAMIN
     Indication: Tendonitis
  17. VITAMIN D3 [Concomitant]
     Active Substance: CHOLECALCIFEROL
     Indication: Anaemia
     Dosage: 1500 UI/WEEK
     Route: 048
     Dates: start: 20210831
  18. ASTRAZENECA VAXZEVRIA VACCINE [Concomitant]
     Indication: COVID-19 immunisation
     Dosage: UNK
     Dates: start: 20210316, end: 20210810

REACTIONS (1)
  - Interstitial lung disease [Recovered/Resolved]

NARRATIVE: CASE EVENT DATE: 20210831
